FAERS Safety Report 4892842-3 (Version None)
Quarter: 2005Q4

REPORT INFORMATION
  Report Type: 
  Country: None (occurrence: None)
  Receive Date: 20051220
  Receipt Date: 20051114
  Transmission Date: 20060501
  Serious: Yes (Other)
  Sender: FDA-Public Use
  Company Number: 410652

PATIENT
  Age: 60 Year
  Sex: Female
  Weight: 64 kg

DRUGS (1)
  1. BONIVA [Suspect]
     Dosage: 1 PER MONTH ORAL
     Route: 048
     Dates: start: 20050713

REACTIONS (3)
  - CHILLS [None]
  - DIARRHOEA [None]
  - PAIN [None]
